FAERS Safety Report 7589514-3 (Version None)
Quarter: 2011Q3

REPORT INFORMATION
  Report Type: 
  Country: None (occurrence: None)
  Receive Date: 20110705
  Receipt Date: 20110626
  Transmission Date: 20111222
  Serious: Yes (Hospitalization)
  Sender: FDA-Public Use
  Company Number: IL-ROCHE-785743

PATIENT
  Sex: Female
  Weight: 48.3 kg

DRUGS (5)
  1. CISPLATIN [Suspect]
     Indication: GASTRIC CANCER
     Dosage: FORM: VIAL, FREQUENCY; D1,8 Q3W. DATE OF LAST DOSE PRIOR TO SAE: 13 JUNE 2011.
     Route: 042
     Dates: start: 20110328
  2. SIMVACOR [Concomitant]
     Dates: start: 20110101
  3. DOCETAXEL [Suspect]
     Indication: GASTRIC CANCER
     Dosage: FORM: VIAL.FREQUENCY: D1,8 Q3W. DATE OF LAST DOSE PRIOR TO SAE: 13 JUNE 2011.
     Route: 042
     Dates: start: 20110328
  4. BEVACIZUMAB [Suspect]
     Indication: GASTRIC CANCER
     Dosage: FORM: VIAL. DATE OF LAST DOSE PRIOR TO SAE: 06 JUNE 2011.
     Route: 042
     Dates: start: 20110328
  5. CAPECITABINE [Suspect]
     Indication: GASTRIC CANCER
     Dosage: FREQUENCY: D1-14/Q3W. DATE OF LAST DOSE PRIOR TO SAE: 20 JUNE 2011.
     Route: 048
     Dates: start: 20110328

REACTIONS (2)
  - HYPONATRAEMIA [None]
  - ASTHENIA [None]
